FAERS Safety Report 16469009 (Version 5)
Quarter: 2019Q4

REPORT INFORMATION
  Report Type: Spontaneous
  Country: US (occurrence: US)
  Receive Date: 20190624
  Receipt Date: 20191121
  Transmission Date: 20200122
  Serious: Yes (Hospitalization)
  Sender: FDA-Public Use
  Company Number: US-PFIZER INC-2019268718

PATIENT
  Age: 69 Year
  Sex: Male

DRUGS (3)
  1. GABAPENTIN. [Suspect]
     Active Substance: GABAPENTIN
     Indication: NEUROPATHY PERIPHERAL
     Dosage: 300 MG, 3X/DAY [300 MG CAPSULE 1 CAP 3X DAY]
     Dates: start: 201609, end: 201905
  2. GABAPENTIN. [Suspect]
     Active Substance: GABAPENTIN
     Indication: RAYNAUD^S PHENOMENON
  3. GABAPENTIN. [Suspect]
     Active Substance: GABAPENTIN
     Indication: TYPE 2 DIABETES MELLITUS
     Dosage: UNK, 3X/DAY
     Route: 048

REACTIONS (4)
  - Drug ineffective for unapproved indication [Not Recovered/Not Resolved]
  - Off label use [Not Recovered/Not Resolved]
  - Irritability [Unknown]
  - Insomnia [Unknown]

NARRATIVE: CASE EVENT DATE: 201609
